FAERS Safety Report 4399652-4 (Version None)
Quarter: 2004Q3

REPORT INFORMATION
  Report Type: 
  Country: None (occurrence: None)
  Receive Date: 20040716
  Receipt Date: 20040712
  Transmission Date: 20050211
  Serious: Yes (Hospitalization, Other)
  Sender: FDA-Public Use
  Company Number: PHHO2004CH09832

PATIENT
  Sex: Female

DRUGS (7)
  1. MELLARIL [Suspect]
     Dosage: 90 MG, QD
     Dates: end: 20040329
  2. MELLARIL [Suspect]
     Dosage: 150 MG, QD
     Dates: start: 20040330, end: 20040408
  3. MELLARIL [Suspect]
     Dosage: 200 MG, QD
     Dates: start: 20040409, end: 20040412
  4. ASPIRIN [Concomitant]
     Dosage: 300 MG, QD
     Route: 048
     Dates: end: 20040401
  5. DIOVAN HCT [Concomitant]
     Dosage: 80/125MG
     Route: 048
  6. FLUCTINE [Suspect]
     Dosage: 20 MG, QD
     Dates: end: 20040324
  7. FLUCTINE [Suspect]
     Dosage: 40 MG, QD
     Dates: start: 20040325, end: 20040413

REACTIONS (8)
  - ABNORMAL BEHAVIOUR [None]
  - APRAXIA [None]
  - DELIRIUM [None]
  - DELUSION [None]
  - DISORIENTATION [None]
  - ELECTROCARDIOGRAM QT PROLONGED [None]
  - MOOD ALTERED [None]
  - PERSECUTORY DELUSION [None]
